FAERS Safety Report 12440478 (Version 5)
Quarter: 2016Q2

REPORT INFORMATION
  Report Type: Spontaneous
  Country: ES (occurrence: ES)
  Receive Date: 20160606
  Receipt Date: 20160616
  Transmission Date: 20160815
  Serious: Yes (Hospitalization, Other)
  Sender: FDA-Public Use
  Company Number: ES-TAKEDA-2016MPI004953

PATIENT
  Age: 73 Year
  Sex: Female
  Weight: 81 kg

DRUGS (88)
  1. VELCADE [Suspect]
     Active Substance: BORTEZOMIB
     Dosage: 2.33 MG, UNK
     Route: 058
     Dates: start: 20150828
  2. VELCADE [Suspect]
     Active Substance: BORTEZOMIB
     Dosage: 2.33 MG, UNK
     Route: 058
     Dates: start: 20150915
  3. VELCADE [Suspect]
     Active Substance: BORTEZOMIB
     Dosage: 2.33 MG, UNK
     Route: 058
     Dates: start: 20151103
  4. VELCADE [Suspect]
     Active Substance: BORTEZOMIB
     Dosage: 2.33 MG, UNK
     Route: 058
     Dates: start: 20160517
  5. PREDNISONE. [Suspect]
     Active Substance: PREDNISONE
     Indication: PLASMA CELL MYELOMA
     Dosage: 110 MG, UNK
     Route: 048
     Dates: start: 20150804, end: 20150808
  6. MELPHALAN [Suspect]
     Active Substance: MELPHALAN
     Dosage: 16 MG, UNK
     Route: 048
     Dates: start: 20160301, end: 20160304
  7. GABAPENTIN. [Concomitant]
     Active Substance: GABAPENTIN
     Indication: GENERAL PHYSICAL HEALTH DETERIORATION
     Dosage: 300 MG, BID
     Route: 048
     Dates: start: 20151229, end: 20151231
  8. ENEMA CASEN                        /01858901/ [Concomitant]
     Indication: GENERAL PHYSICAL HEALTH DETERIORATION
     Dosage: UNK
     Route: 054
     Dates: start: 20160205, end: 20160205
  9. METAMIZOLE [Concomitant]
     Active Substance: METAMIZOLE
     Indication: MUSCULOSKELETAL CHEST PAIN
     Route: 048
     Dates: start: 20150905, end: 20150910
  10. FUROSEMIDE. [Concomitant]
     Active Substance: FUROSEMIDE
     Indication: GENERAL PHYSICAL HEALTH DETERIORATION
  11. VELCADE [Suspect]
     Active Substance: BORTEZOMIB
     Indication: PLASMA CELL MYELOMA
     Dosage: 2.33 MG, UNK
     Route: 058
     Dates: start: 20150425
  12. VELCADE [Suspect]
     Active Substance: BORTEZOMIB
     Dosage: 2.33 MG, UNK
     Route: 058
     Dates: start: 20150811
  13. VELCADE [Suspect]
     Active Substance: BORTEZOMIB
     Dosage: 2.33 MG, UNK
     Route: 058
     Dates: start: 20151117
  14. VELCADE [Suspect]
     Active Substance: BORTEZOMIB
     Dosage: 2.33 MG, UNK
     Route: 058
     Dates: start: 20151217
  15. VELCADE [Suspect]
     Active Substance: BORTEZOMIB
     Dosage: 2.33 MG, UNK
     Route: 058
     Dates: start: 20151229
  16. VELCADE [Suspect]
     Active Substance: BORTEZOMIB
     Dosage: 2.33 MG, UNK
     Route: 058
     Dates: start: 20160105
  17. VELCADE [Suspect]
     Active Substance: BORTEZOMIB
     Dosage: UNK
     Route: 058
     Dates: start: 20160126
  18. VELCADE [Suspect]
     Active Substance: BORTEZOMIB
     Dosage: 2.33 MG, UNK
     Route: 058
     Dates: start: 20160216
  19. MELPHALAN [Suspect]
     Active Substance: MELPHALAN
     Dosage: 16 MG, UNK
     Route: 048
     Dates: start: 20160419, end: 20160422
  20. MOMETASONE [Concomitant]
     Active Substance: MOMETASONE
     Indication: TOXIC SKIN ERUPTION
     Route: 065
     Dates: start: 20150907, end: 20150917
  21. GABAPENTIN. [Concomitant]
     Active Substance: GABAPENTIN
     Indication: PROPHYLAXIS
     Dosage: 300 MG, UNK
     Route: 048
     Dates: start: 20160101, end: 20160104
  22. ALISKIREN [Concomitant]
     Active Substance: ALISKIREN
     Indication: HYPERTENSION
     Dosage: 300 MG, UNK
     Route: 048
     Dates: start: 2014, end: 20150818
  23. CLEXANE [Concomitant]
     Active Substance: ENOXAPARIN SODIUM
     Indication: ACUTE KIDNEY INJURY
     Dosage: 20 MG, UNK
     Route: 058
     Dates: start: 20160205, end: 20160205
  24. PREDNISONE. [Suspect]
     Active Substance: PREDNISONE
     Dosage: 110 MG, UNK
     Route: 048
     Dates: start: 20160419, end: 20160422
  25. CITALOPRAM [Concomitant]
     Active Substance: CITALOPRAM HYDROBROMIDE
     Indication: ANTIDEPRESSANT THERAPY
     Dosage: 20 MG, UNK
     Route: 048
     Dates: start: 2014
  26. SEPTRIN [Concomitant]
     Active Substance: SULFAMETHOXAZOLE\TRIMETHOPRIM
     Indication: INFECTION PROPHYLAXIS
     Dosage: UNK, 3/WEEK
     Route: 048
     Dates: start: 20150803, end: 20160205
  27. MEGESTROL [Concomitant]
     Active Substance: MEGESTROL
     Indication: DECREASED APPETITE
     Route: 048
     Dates: start: 20150901
  28. GABAPENTIN. [Concomitant]
     Active Substance: GABAPENTIN
     Indication: BONE PAIN
     Dosage: 100 MG, UNK
     Route: 048
     Dates: start: 20160205
  29. VELCADE [Suspect]
     Active Substance: BORTEZOMIB
     Dosage: 2.33 MG, UNK
     Route: 058
     Dates: start: 20150901
  30. VELCADE [Suspect]
     Active Substance: BORTEZOMIB
     Dosage: 2.33 MG, UNK
     Route: 058
     Dates: start: 20150904
  31. VELCADE [Suspect]
     Active Substance: BORTEZOMIB
     Dosage: 2.33 MG, UNK
     Route: 058
     Dates: start: 20151013
  32. VELCADE [Suspect]
     Active Substance: BORTEZOMIB
     Dosage: 2.33 MG, UNK
     Route: 058
     Dates: start: 20151027
  33. VELCADE [Suspect]
     Active Substance: BORTEZOMIB
     Dosage: 2.33 MG, UNK
     Route: 058
     Dates: start: 20160119
  34. VELCADE [Suspect]
     Active Substance: BORTEZOMIB
     Dosage: 2.33 MG, UNK
     Route: 058
     Dates: start: 20160301
  35. VELCADE [Suspect]
     Active Substance: BORTEZOMIB
     Dosage: 2.33 MG, UNK
     Route: 058
     Dates: start: 20160329
  36. MELPHALAN [Suspect]
     Active Substance: MELPHALAN
     Dosage: 9 MG, UNK
     Route: 048
     Dates: start: 20151210, end: 20151213
  37. VALACYCLOVIR [Concomitant]
     Active Substance: VALACYCLOVIR HYDROCHLORIDE
     Indication: INFECTION PROPHYLAXIS
     Route: 048
     Dates: start: 20150803
  38. DESLORATADINE. [Concomitant]
     Active Substance: DESLORATADINE
     Indication: TOXIC SKIN ERUPTION
     Dosage: 5 MG, UNK
     Route: 048
     Dates: start: 20150907, end: 20150917
  39. ENEMA CASEN                        /01858901/ [Concomitant]
     Indication: ACUTE KIDNEY INJURY
     Dosage: 250 ML, UNK
     Route: 054
     Dates: start: 20160204, end: 20160204
  40. GABAPENTIN. [Concomitant]
     Active Substance: GABAPENTIN
     Indication: PERIPHERAL SENSORY NEUROPATHY
     Route: 048
     Dates: start: 2013, end: 20151209
  41. TORASEMIDE [Concomitant]
     Active Substance: TORSEMIDE
     Indication: HYPERTENSION
     Dosage: 10 MG, UNK
     Route: 048
     Dates: start: 2014, end: 20150818
  42. CLEXANE [Concomitant]
     Active Substance: ENOXAPARIN SODIUM
     Indication: GENERAL PHYSICAL HEALTH DETERIORATION
  43. LORAZEPAM. [Concomitant]
     Active Substance: LORAZEPAM
     Indication: SLEEP DISORDER THERAPY
     Route: 048
     Dates: start: 20160216
  44. VELCADE [Suspect]
     Active Substance: BORTEZOMIB
     Dosage: 2.33 MG, UNK
     Route: 058
     Dates: start: 20150804
  45. VELCADE [Suspect]
     Active Substance: BORTEZOMIB
     Dosage: 2.33 MG, UNK
     Route: 058
     Dates: start: 20150922
  46. VELCADE [Suspect]
     Active Substance: BORTEZOMIB
     Dosage: 2.33 MG, UNK
     Route: 058
     Dates: start: 20160308
  47. VELCADE [Suspect]
     Active Substance: BORTEZOMIB
     Dosage: 2.33 MG, UNK
     Route: 058
     Dates: start: 20160322
  48. PREDNISONE. [Suspect]
     Active Substance: PREDNISONE
     Dosage: 110 MG, UNK
     Route: 048
     Dates: start: 20151210, end: 20151213
  49. PREDNISONE. [Suspect]
     Active Substance: PREDNISONE
     Dosage: 110 MG, UNK
     Route: 048
     Dates: start: 20160119, end: 20160122
  50. ATARAX [Concomitant]
     Active Substance: HYDROXYZINE\HYDROXYZINE HYDROCHLORIDE
     Indication: TOXIC SKIN ERUPTION
     Route: 048
     Dates: start: 20150907, end: 20150917
  51. GABAPENTIN. [Concomitant]
     Active Substance: GABAPENTIN
     Indication: PROPHYLAXIS
  52. ERYTHROPOIETIN [Concomitant]
     Active Substance: ERYTHROPOIETIN
     Indication: ACUTE KIDNEY INJURY
     Dosage: UNK, 1/WEEK
     Route: 058
     Dates: start: 20150901, end: 20151027
  53. CEFTRIAXONE. [Concomitant]
     Active Substance: CEFTRIAXONE
     Indication: GENERAL PHYSICAL HEALTH DETERIORATION
     Dosage: 2 G, UNK
     Route: 042
     Dates: start: 20160209, end: 20160211
  54. OMEPRAZOLE. [Concomitant]
     Active Substance: OMEPRAZOLE
     Indication: PROPHYLAXIS
     Route: 048
     Dates: start: 20160216
  55. VELCADE [Suspect]
     Active Substance: BORTEZOMIB
     Dosage: 2.33 MG, UNK
     Route: 058
     Dates: start: 20150807
  56. VELCADE [Suspect]
     Active Substance: BORTEZOMIB
     Dosage: 2.33 MG, UNK
     Route: 058
     Dates: start: 20150814
  57. VELCADE [Suspect]
     Active Substance: BORTEZOMIB
     Dosage: 2.33 MG, UNK
     Route: 058
     Dates: start: 20151210
  58. VELCADE [Suspect]
     Active Substance: BORTEZOMIB
     Dosage: 2.33 MG, UNK
     Route: 058
     Dates: start: 20160426
  59. VELCADE [Suspect]
     Active Substance: BORTEZOMIB
     Dosage: 2.33 MG, UNK
     Route: 058
     Dates: start: 20160510
  60. NALOXONE W/OXYCODONE [Concomitant]
     Active Substance: NALOXONE HYDROCHLORIDE\OXYCODONE HYDROCHLORIDE
     Indication: PROPHYLAXIS
     Dosage: 15 MG, BID
     Route: 048
     Dates: start: 2014, end: 20160216
  61. NALOXONE W/OXYCODONE [Concomitant]
     Active Substance: NALOXONE HYDROCHLORIDE\OXYCODONE HYDROCHLORIDE
     Indication: CANCER PAIN
  62. GABAPENTIN. [Concomitant]
     Active Substance: GABAPENTIN
     Indication: ACUTE KIDNEY INJURY
     Dosage: 600 MG, BID
     Route: 048
     Dates: start: 20151210, end: 20151228
  63. ERYTHROPOIETIN [Concomitant]
     Active Substance: ERYTHROPOIETIN
     Indication: GENERAL PHYSICAL HEALTH DETERIORATION
     Dosage: UNK, 1/WEEK
     Route: 058
     Dates: start: 20160205, end: 20160206
  64. ERYTHROPOIETIN [Concomitant]
     Active Substance: ERYTHROPOIETIN
     Indication: ANAEMIA PROPHYLAXIS
  65. VELCADE [Suspect]
     Active Substance: BORTEZOMIB
     Dosage: 2.33 MG, UNK
     Route: 058
     Dates: start: 20151124
  66. VELCADE [Suspect]
     Active Substance: BORTEZOMIB
     Dosage: UNK
     Route: 058
     Dates: start: 20160209
  67. PREDNISONE. [Suspect]
     Active Substance: PREDNISONE
     Dosage: 110 MG, UNK
     Route: 048
     Dates: start: 20151027, end: 20151030
  68. PREDNISONE. [Suspect]
     Active Substance: PREDNISONE
     Dosage: 110 MG, UNK
     Route: 048
     Dates: start: 20160301, end: 20160304
  69. MELPHALAN [Suspect]
     Active Substance: MELPHALAN
     Dosage: 16 MG, UNK
     Route: 048
     Dates: start: 20150915, end: 20150918
  70. MELPHALAN [Suspect]
     Active Substance: MELPHALAN
     Dosage: 16 MG, UNK
     Route: 048
     Dates: start: 20160119, end: 20160122
  71. ESOMEPRAZOLE [Concomitant]
     Active Substance: ESOMEPRAZOLE
     Indication: PROPHYLAXIS
     Dosage: 20 MG, UNK
     Route: 048
     Dates: start: 2014, end: 20160215
  72. ZOLEDRONIC ACID [Concomitant]
     Active Substance: ZOLEDRONIC ACID
     Indication: OSTEOPOROSIS PROPHYLAXIS
     Route: 042
     Dates: start: 20150804
  73. LEVOFLOXACIN. [Concomitant]
     Active Substance: LEVOFLOXACIN
     Indication: PYREXIA
     Route: 048
     Dates: start: 20150818, end: 20150824
  74. POLARAMINE [Concomitant]
     Active Substance: DEXCHLORPHENIRAMINE MALEATE
     Indication: TOXIC SKIN ERUPTION
     Route: 030
     Dates: start: 20150907, end: 20150907
  75. FUROSEMIDE. [Concomitant]
     Active Substance: FUROSEMIDE
     Indication: ACUTE KIDNEY INJURY
     Dosage: 20 MG, UNK
     Route: 048
     Dates: start: 20160216
  76. CEFTRIAXONE. [Concomitant]
     Active Substance: CEFTRIAXONE
     Indication: ACUTE KIDNEY INJURY
     Dosage: 1 G, UNK
     Route: 042
     Dates: start: 20160208, end: 20160208
  77. VELCADE [Suspect]
     Active Substance: BORTEZOMIB
     Dosage: 2.33 MG, UNK
     Route: 058
     Dates: start: 20151006
  78. VELCADE [Suspect]
     Active Substance: BORTEZOMIB
     Dosage: 2.33 MG, UNK
     Route: 058
     Dates: start: 20160319
  79. PREDNISONE. [Suspect]
     Active Substance: PREDNISONE
     Dosage: 110 MG, UNK
     Route: 048
     Dates: start: 20150915, end: 20150918
  80. MELPHALAN [Suspect]
     Active Substance: MELPHALAN
     Indication: PLASMA CELL MYELOMA
     Dosage: 16 MG, UNK
     Route: 048
     Dates: start: 20150804, end: 20150808
  81. MELPHALAN [Suspect]
     Active Substance: MELPHALAN
     Dosage: 16 MG, UNK
     Route: 048
     Dates: start: 20151027, end: 20151030
  82. CALCIUM W/VITAMIN D NOS [Concomitant]
     Active Substance: CALCIUM\VITAMIN D
     Indication: PROPHYLAXIS
     Dosage: 1000 MG, UNK
     Route: 048
     Dates: start: 2014
  83. MICOSTATIN [Concomitant]
     Indication: OROPHARYNGEAL CANDIDIASIS
     Dosage: 5 ML, TID
     Route: 048
     Dates: start: 20150907, end: 20150918
  84. TORASEMIDE [Concomitant]
     Active Substance: TORSEMIDE
     Indication: HYPERTENSION
     Route: 048
     Dates: start: 20150915
  85. PARACETAMOL [Concomitant]
     Active Substance: ACETAMINOPHEN
     Indication: PYREXIA
     Route: 048
     Dates: start: 20150818, end: 20150824
  86. ENEMA CASEN                        /01858901/ [Concomitant]
     Indication: CONSTIPATION
  87. TRAMADOL/PARACETAMOL [Concomitant]
     Active Substance: ACETAMINOPHEN\TRAMADOL
     Indication: MUSCULOSKELETAL CHEST PAIN
     Route: 048
     Dates: start: 20150905, end: 20150910
  88. FOSFOMYCIN [Concomitant]
     Active Substance: FOSFOMYCIN
     Indication: PROPHYLAXIS URINARY TRACT INFECTION
     Dosage: 3 G, UNK
     Route: 048
     Dates: start: 20160205, end: 20160205

REACTIONS (12)
  - Pyrexia [Unknown]
  - Gastrointestinal motility disorder [Recovered/Resolved]
  - Nausea [Recovered/Resolved]
  - Oropharyngeal candidiasis [Unknown]
  - Toxic skin eruption [Unknown]
  - General physical health deterioration [Recovered/Resolved]
  - Acute kidney injury [Recovered/Resolved]
  - Urinary tract infection [Unknown]
  - Constipation [Unknown]
  - Decreased appetite [Recovered/Resolved]
  - Contusion [Unknown]
  - Autonomic nervous system imbalance [Recovered/Resolved]

NARRATIVE: CASE EVENT DATE: 20150816
